FAERS Safety Report 4470468-3 (Version None)
Quarter: 2004Q4

REPORT INFORMATION
  Report Type: 
  Country: None (occurrence: None)
  Receive Date: 20041005
  Receipt Date: 20040920
  Transmission Date: 20050328
  Serious: Yes (Other)
  Sender: FDA-Public Use
  Company Number: 2004234771JP

PATIENT
  Age: 75 Year
  Sex: Female
  Weight: 54 kg

DRUGS (3)
  1. HEPARIN SODIUM [Suspect]
     Indication: THROMBOSIS PROPHYLAXIS
     Dosage: 14000 U, IV
     Route: 042
     Dates: start: 20030101, end: 20030101
  2. FUROSEMIDE [Concomitant]
  3. ATRIAL NATRIURETIC PEPTIDE        (ATRIAL  NATRIURETIC PEPTIDE) [Concomitant]

REACTIONS (16)
  - ACTIVATED PARTIAL THROMBOPLASTIN TIME PROLONGED [None]
  - DISEASE PROGRESSION [None]
  - DISSEMINATED INTRAVASCULAR COAGULATION [None]
  - DRUG SPECIFIC ANTIBODY PRESENT [None]
  - DRY GANGRENE [None]
  - EMBOLISM [None]
  - FACIAL PARESIS [None]
  - GENERAL PHYSICAL HEALTH DETERIORATION [None]
  - HEPARIN-INDUCED THROMBOCYTOPENIA [None]
  - HEPATIC FUNCTION ABNORMAL [None]
  - LOSS OF CONSCIOUSNESS [None]
  - PERIPHERAL EMBOLISM [None]
  - POLYCYTHAEMIA VERA [None]
  - RENAL FAILURE ACUTE [None]
  - SHOCK [None]
  - TRANSIENT ISCHAEMIC ATTACK [None]
